FAERS Safety Report 19075224 (Version 1)
Quarter: 2021Q1

REPORT INFORMATION
  Report Type: Spontaneous
  Country: SE (occurrence: SE)
  Receive Date: 20210330
  Receipt Date: 20210330
  Transmission Date: 20210420
  Serious: Yes (Other)
  Sender: FDA-Public Use
  Company Number: SE-MYLANLABS-2020M1060791

PATIENT
  Age: 70 Year
  Sex: Female

DRUGS (8)
  1. CIPROFLOXACINE MYLAN 500 MG FILMTABLETTEN [Suspect]
     Active Substance: CIPROFLOXACIN
     Indication: KIDNEY INFECTION
  2. MAGNESIUM [Concomitant]
     Active Substance: MAGNESIUM
     Dosage: UNK
  3. CIPROFLOXACIN KRKA [Suspect]
     Active Substance: CIPROFLOXACIN HYDROCHLORIDE
     Indication: PRODUCT USED FOR UNKNOWN INDICATION
     Dosage: UNK
  4. METOPROLOL. [Concomitant]
     Active Substance: METOPROLOL
     Indication: HYPERTENSION
     Dosage: 62.5 MILLIGRAM
  5. CIPROFLOXACINE MYLAN 500 MG FILMTABLETTEN [Suspect]
     Active Substance: CIPROFLOXACIN
     Indication: URINARY TRACT INFECTION
     Dosage: 500 MILLIGRAM, BID
     Dates: start: 202006, end: 20200624
  6. CIPROFLOXACINE MYLAN 500 MG FILMTABLETTEN [Suspect]
     Active Substance: CIPROFLOXACIN
     Indication: PELVIC INFECTION
     Dosage: 1000 MILLIGRAM, QD (500 MILLIGRAM, BID)
     Dates: start: 202006, end: 20200624
  7. LASIX [Concomitant]
     Active Substance: FUROSEMIDE
     Indication: HYPERTENSION
     Dosage: 30 MILLIGRAM
  8. LASIX [Concomitant]
     Active Substance: FUROSEMIDE
     Dosage: UNK

REACTIONS (7)
  - Condition aggravated [Recovering/Resolving]
  - Pain in extremity [Unknown]
  - Tendon pain [Not Recovered/Not Resolved]
  - Myalgia [Not Recovered/Not Resolved]
  - Arthralgia [Not Recovered/Not Resolved]
  - Ageusia [Recovering/Resolving]
  - Musculoskeletal stiffness [Recovered/Resolved]

NARRATIVE: CASE EVENT DATE: 202006
